FAERS Safety Report 14900158 (Version 1)
Quarter: 2018Q2

REPORT INFORMATION
  Report Type: Spontaneous
  Country: US (occurrence: US)
  Receive Date: 20180516
  Receipt Date: 20180516
  Transmission Date: 20180711
  Serious: No
  Sender: FDA-Public Use
  Company Number: US-AUROBINDO-AUR-APU-2018-013403

PATIENT
  Age: 68 Year
  Sex: Male
  Weight: 95.24 kg

DRUGS (3)
  1. CEFUROXIME 500 MG [Suspect]
     Active Substance: CEFUROXIME
     Indication: COUGH
  2. CEFUROXIME 500 MG [Suspect]
     Active Substance: CEFUROXIME
     Indication: NASOPHARYNGITIS
     Dosage: 1TAB, TWO TIMES A DAY
     Route: 065
     Dates: end: 20180803
  3. CEFUROXIME 500 MG [Suspect]
     Active Substance: CEFUROXIME
     Indication: PYREXIA

REACTIONS (1)
  - Enuresis [Unknown]

NARRATIVE: CASE EVENT DATE: 201701
